FAERS Safety Report 19078411 (Version 1)
Quarter: 2021Q1

REPORT INFORMATION
  Report Type: Spontaneous
  Country: CA (occurrence: CA)
  Receive Date: 20210331
  Receipt Date: 20210331
  Transmission Date: 20210420
  Serious: Yes (Other)
  Sender: FDA-Public Use
  Company Number: CA-SUN PHARMACEUTICAL INDUSTRIES LTD-2021R1-288533

PATIENT
  Sex: Female

DRUGS (7)
  1. FENTANYL. [Interacting]
     Active Substance: FENTANYL
     Dosage: ONE FENTANYL PATCH OF 25 MCG EVERY 72 HOURS
     Route: 065
  2. NAPROXEN. [Interacting]
     Active Substance: NAPROXEN
     Indication: PAIN
     Dosage: 200 MILLIGRAM, BID
     Route: 048
  3. GABAPENTIN. [Interacting]
     Active Substance: GABAPENTIN
     Indication: PAIN
     Dosage: 1200 MILLIGRAM, TID
     Route: 048
  4. MORPHINE [Interacting]
     Active Substance: MORPHINE
     Indication: PAIN
     Dosage: 10 MG IMMEDIATE?RELEASE, TO 5 TIMES PER DAY
     Route: 048
  5. ACETAMINOPHEN. [Suspect]
     Active Substance: ACETAMINOPHEN
     Indication: PAIN
     Route: 048
  6. DICLOFENAC [Interacting]
     Active Substance: DICLOFENAC
     Indication: PAIN
     Route: 061
  7. FENTANYL. [Interacting]
     Active Substance: FENTANYL
     Indication: PAIN
     Dosage: 150 MCG, EVERY 48 HOURS
     Route: 065

REACTIONS (2)
  - Withdrawal syndrome [Unknown]
  - Drug interaction [Unknown]
